FAERS Safety Report 18806141 (Version 3)
Quarter: 2021Q2

REPORT INFORMATION
  Report Type: Spontaneous
  Country: PT (occurrence: PT)
  Receive Date: 20210129
  Receipt Date: 20210602
  Transmission Date: 20210717
  Serious: Yes (Death, Hospitalization, Other)
  Sender: FDA-Public Use
  Company Number: PT-CELLTRION INC.-2021PT000924

PATIENT

DRUGS (5)
  1. RITUXIMAB (UNKNOWN) [Suspect]
     Active Substance: RITUXIMAB
     Dosage: 6 CYCLES WITH BENDAMUSTINE; UNK UNK, CYCLIC (6 CYCLES)
     Route: 065
  2. BENDAMUSTINE HYDROCHLORIDE. [Suspect]
     Active Substance: BENDAMUSTINE HYDROCHLORIDE
     Indication: B-CELL LYMPHOMA STAGE II
  3. RITUXIMAB (UNKNOWN) [Suspect]
     Active Substance: RITUXIMAB
     Indication: B-CELL LYMPHOMA STAGE II
     Dosage: 8 CYCLES WITH CHOP
  4. CHOP [Suspect]
     Active Substance: CYCLOPHOSPHAMIDE\DOXORUBICIN\PREDNISONE\VINCRISTINE
     Indication: FOLLICULAR LYMPHOMA
     Dosage: 8 CYCLES
  5. BENDAMUSTINE HYDROCHLORIDE. [Suspect]
     Active Substance: BENDAMUSTINE HYDROCHLORIDE
     Indication: B-CELL LYMPHOMA STAGE II
     Dosage: 6 CYCLES WITH RITUXIMAB; UNK UNK, CYCLIC (6 CYCLES)
     Route: 042

REACTIONS (3)
  - Encephalopathy [Fatal]
  - Disease progression [Unknown]
  - Death [Fatal]
